FAERS Safety Report 8845853 (Version 1)
Quarter: 2012Q4

REPORT INFORMATION
  Report Type: 
  Country: US (occurrence: US)
  Receive Date: 20121017
  Receipt Date: 20121017
  Transmission Date: 20130627
  Serious: No
  Sender: FDA-Public Use
  Company Number: US-VERTEX PHARMACEUTICAL INC.-2012-022646

PATIENT
  Age: 53 Year
  Sex: Female
  Weight: 75 kg

DRUGS (4)
  1. INCIVEK [Suspect]
     Indication: HEPATITIS C
     Dosage: 750 mg, tid
     Route: 048
     Dates: start: 20120920
  2. PEGASYS [Suspect]
     Indication: HEPATITIS C
     Dosage: 180 ?g, UNK
     Route: 058
     Dates: start: 20120920
  3. RIBAVIRIN [Suspect]
     Indication: HEPATITIS C
     Dosage: 600 mg AM and 400 mg PM, qd
     Route: 048
     Dates: start: 20120920
  4. TRAZODONE [Concomitant]
     Dosage: 150 mg, qd
     Route: 048

REACTIONS (3)
  - Muscle contractions involuntary [Not Recovered/Not Resolved]
  - Tremor [Not Recovered/Not Resolved]
  - Gaze palsy [Not Recovered/Not Resolved]
